FAERS Safety Report 20762263 (Version 3)
Quarter: 2022Q2

REPORT INFORMATION
  Report Type: Report from Study
  Country: US (occurrence: US)
  Receive Date: 20220428
  Receipt Date: 20220511
  Transmission Date: 20220721
  Serious: Yes (Hospitalization, Other)
  Sender: FDA-Public Use
  Company Number: US-ABBVIE-22K-163-4373802-00

PATIENT
  Sex: Male

DRUGS (1)
  1. IMBRUVICA [Suspect]
     Active Substance: IBRUTINIB
     Indication: Waldenstrom^s macroglobulinaemia
     Route: 048
     Dates: start: 20220416, end: 20220429

REACTIONS (12)
  - Haematocrit decreased [Unknown]
  - Haemoglobin decreased [Unknown]
  - Hospitalisation [Unknown]
  - Immunodeficiency [Unknown]
  - Encephalitis [Unknown]
  - Dyspnoea [Unknown]
  - Meningitis [Unknown]
  - Thrombophlebitis [Unknown]
  - Staphylococcal sepsis [Unknown]
  - Urinary tract infection [Unknown]
  - Listeriosis [Unknown]
  - Neutrophil count decreased [Unknown]

NARRATIVE: CASE EVENT DATE: 20220101
